FAERS Safety Report 6181093-0 (Version None)
Quarter: 2009Q2

REPORT INFORMATION
  Report Type: 
  Country: None (occurrence: None)
  Receive Date: 20090506
  Receipt Date: 20090424
  Transmission Date: 20091009
  Serious: Yes (Disabling)
  Sender: FDA-Public Use
  Company Number: PL-PFIZER INC-2009205407

PATIENT

DRUGS (2)
  1. DEPO-MEDROL [Suspect]
     Route: 030
  2. ANALGESICS [Concomitant]

REACTIONS (5)
  - BURNING SENSATION [None]
  - DISABILITY [None]
  - HYPOAESTHESIA [None]
  - PAIN [None]
  - PARAESTHESIA [None]
